FAERS Safety Report 11460637 (Version 2)
Quarter: 2015Q3

REPORT INFORMATION
  Report Type: Report from Study
  Country: AR (occurrence: AR)
  Receive Date: 20150904
  Receipt Date: 20150910
  Transmission Date: 20151125
  Serious: Yes (Death, Hospitalization, Other)
  Sender: FDA-Public Use
  Company Number: PHHY2015AR106289

PATIENT
  Age: 88 Year
  Sex: Male

DRUGS (3)
  1. EXELON PATCH [Suspect]
     Active Substance: RIVASTIGMINE
     Indication: DEMENTIA ALZHEIMER^S TYPE
     Dosage: 5 MG, QD
     Route: 062
     Dates: end: 201505
  2. LEVODOPA [Concomitant]
     Active Substance: LEVODOPA
     Indication: PRODUCT USED FOR UNKNOWN INDICATION
     Route: 065
  3. EXELON PATCH [Suspect]
     Active Substance: RIVASTIGMINE
     Dosage: 15 MG, QD
     Route: 062
     Dates: start: 201505

REACTIONS (7)
  - Cardiomyopathy [Fatal]
  - Confusional state [Unknown]
  - Sepsis [Unknown]
  - Urinary tract infection [Recovering/Resolving]
  - Dyspnoea [Fatal]
  - Cardiac failure [Fatal]
  - Dysuria [Fatal]

NARRATIVE: CASE EVENT DATE: 201507
